FAERS Safety Report 10273109 (Version 2)
Quarter: 2014Q3

REPORT INFORMATION
  Report Type: Report from Study
  Country: JP (occurrence: JP)
  Receive Date: 20140702
  Receipt Date: 20140812
  Transmission Date: 20150326
  Serious: Yes (Hospitalization)
  Sender: FDA-Public Use
  Company Number: JP-EISAI INC-E2020-14227-SOL-JP

PATIENT
  Age: 93 Year
  Sex: Male

DRUGS (4)
  1. TAMSULOSIN [Concomitant]
     Active Substance: TAMSULOSIN
  2. YOKUKANSAN [Concomitant]
     Active Substance: HERBALS
  3. ARICEPT [Suspect]
     Active Substance: DONEPEZIL HYDROCHLORIDE
     Route: 048
     Dates: start: 20120308, end: 20130604
  4. ARICEPT [Suspect]
     Active Substance: DONEPEZIL HYDROCHLORIDE
     Indication: DEMENTIA ALZHEIMER^S TYPE
     Route: 048
     Dates: start: 20100916, end: 20120307

REACTIONS (4)
  - Bradycardia [Recovered/Resolved]
  - Sinus arrest [Unknown]
  - Atrioventricular block [Unknown]
  - Drug ineffective [None]

NARRATIVE: CASE EVENT DATE: 20130604
